FAERS Safety Report 8530638-1 (Version None)
Quarter: 2012Q3

REPORT INFORMATION
  Report Type: 
  Country: None (occurrence: None)
  Receive Date: 20120723
  Receipt Date: 20120710
  Transmission Date: 20120928
  Serious: Yes (Death, Hospitalization)
  Sender: FDA-Public Use
  Company Number: DE-ROCHE-1066085

PATIENT
  Age: 65 Year
  Sex: Female
  Weight: 46.4 kg

DRUGS (9)
  1. AVASTIN [Suspect]
     Indication: OVARIAN CANCER
     Route: 042
     Dates: start: 20120321, end: 20120418
  2. CARBOPLATIN [Suspect]
     Indication: OVARIAN CANCER
     Dosage: AUC 5,
     Route: 042
     Dates: start: 20120227, end: 20120418
  3. PACLITAXEL [Suspect]
     Indication: OVARIAN CANCER
     Dosage: LAST DOSE:15/MAY/2012
     Route: 042
     Dates: start: 20120227, end: 20120418
  4. NOVALGIN [Concomitant]
     Indication: PAIN
     Dosage: 2 UNIT DAILY
     Route: 048
     Dates: start: 20120502
  5. AVASTIN [Suspect]
     Dosage: LAST DOSE:15/MAY/2012
     Route: 042
     Dates: end: 20120610
  6. CARBOPLATIN [Suspect]
     Dosage: AUC 5, LAST DOSE:15/MAY/2012
     Route: 042
     Dates: end: 20120610
  7. PANTOPRAZOLE [Concomitant]
     Dosage: 2 UNITS DAILY
     Route: 048
     Dates: start: 20120502
  8. ZOLPIDEM [Concomitant]
     Dosage: 2 UNITS DAILY
     Route: 048
     Dates: start: 20120502
  9. PACLITAXEL [Suspect]
     Dosage: LAST DOSE:15/MAY/2012
     Route: 042
     Dates: end: 20120610

REACTIONS (9)
  - INFECTION [None]
  - SEPSIS [None]
  - NAUSEA [None]
  - WEIGHT DECREASED [None]
  - GENERAL PHYSICAL HEALTH DETERIORATION [None]
  - FATIGUE [None]
  - ANAEMIA [None]
  - FISTULA [None]
  - DECREASED APPETITE [None]
